FAERS Safety Report 6586362-8 (Version None)
Quarter: 2010Q1

REPORT INFORMATION
  Report Type: 
  Country: None (occurrence: None)
  Receive Date: 20100216
  Receipt Date: 20100216
  Transmission Date: 20100710
  Serious: Yes (Hospitalization)
  Sender: FDA-Public Use
  Company Number: None

PATIENT
  Sex: Female
  Weight: 50.8029 kg

DRUGS (1)
  1. TARCEVA [Suspect]
     Indication: NON-SMALL CELL LUNG CANCER
     Dosage: 150 MG, DAILY, ORAL
     Route: 048
     Dates: start: 20090910

REACTIONS (4)
  - DEEP VEIN THROMBOSIS [None]
  - SMALL INTESTINAL OBSTRUCTION [None]
  - SMALL INTESTINAL PERFORATION [None]
  - SUPRAVENTRICULAR TACHYCARDIA [None]
